FAERS Safety Report 11061595 (Version 1)
Quarter: 2015Q2

REPORT INFORMATION
  Report Type: Spontaneous
  Country: US (occurrence: None)
  Receive Date: 20150423
  Receipt Date: 20150423
  Transmission Date: 20150821
  Serious: Yes (Hospitalization)
  Sender: FDA-Public Use
  Company Number: None

PATIENT
  Age: 22 Year
  Sex: Female
  Weight: 68.5 kg

DRUGS (2)
  1. ACETAMINOPHEN 500MG [Suspect]
     Active Substance: ACETAMINOPHEN
     Indication: TOOTHACHE
     Route: 048
  2. IBUPROFEN 800 MG [Suspect]
     Active Substance: IBUPROFEN
     Indication: TOOTHACHE
     Route: 048
     Dates: start: 20141028, end: 20141029

REACTIONS (3)
  - Epigastric discomfort [None]
  - Vomiting [None]
  - Gastritis [None]

NARRATIVE: CASE EVENT DATE: 20141029
